FAERS Safety Report 7176833-8 (Version None)
Quarter: 2010Q4

REPORT INFORMATION
  Report Type: 
  Country: None (occurrence: None)
  Receive Date: 20101220
  Receipt Date: 20101213
  Transmission Date: 20110411
  Serious: Yes (Hospitalization)
  Sender: FDA-Public Use
  Company Number: US-BRISTOL-MYERS SQUIBB COMPANY-15439409

PATIENT

DRUGS (1)
  1. ORENCIA [Suspect]
     Dates: start: 20100701

REACTIONS (1)
  - POLYMYOSITIS [None]
